FAERS Safety Report 5915396-9 (Version None)
Quarter: 2008Q4

REPORT INFORMATION
  Report Type: 
  Country: None (occurrence: None)
  Receive Date: 20081010
  Receipt Date: 20081001
  Transmission Date: 20090506
  Serious: Yes (Other)
  Sender: FDA-Public Use
  Company Number: US-ROCHE-588964

PATIENT
  Sex: Male
  Weight: 56.7 kg

DRUGS (1)
  1. CAPECITABINE [Suspect]
     Indication: COLORECTAL CANCER
     Dosage: TWO WEEKS ON AND ONE WEEK OFF
     Route: 065
     Dates: start: 20080703, end: 20080917

REACTIONS (1)
  - DISEASE PROGRESSION [None]
